FAERS Safety Report 15271386 (Version 1)
Quarter: 2018Q3

REPORT INFORMATION
  Report Type: Spontaneous
  Country: US (occurrence: US)
  Receive Date: 20180813
  Receipt Date: 20180813
  Transmission Date: 20181010
  Serious: No
  Sender: FDA-Public Use
  Company Number: US-GLAXOSMITHKLINE-US2018GSK146244

PATIENT
  Sex: Male

DRUGS (1)
  1. TRANSDERM SCOP [Suspect]
     Active Substance: SCOPOLAMINE
     Indication: PRODUCT USED FOR UNKNOWN INDICATION
     Route: 062

REACTIONS (3)
  - Application site rash [Unknown]
  - Application site pruritus [Unknown]
  - Hypersensitivity [Unknown]
